FAERS Safety Report 20632050 (Version 1)
Quarter: 2022Q1

REPORT INFORMATION
  Report Type: Other
  Country: US (occurrence: None)
  Receive Date: 20220324
  Receipt Date: 20220324
  Transmission Date: 20220423
  Serious: Yes (Hospitalization)
  Sender: FDA-Public Use
  Company Number: US-ROCHE-2892325

PATIENT
  Sex: Male
  Weight: 63.560 kg

DRUGS (10)
  1. OCREVUS [Suspect]
     Active Substance: OCRELIZUMAB
     Indication: Relapsing-remitting multiple sclerosis
     Dosage: PRESCRIBED: 300 MG DAY 1 AND DAY 15 THAN 600 MG EVERY 6 MONTHS?DATE OF TREATMENT: 17/FEB/2022, 19/JU
     Route: 042
     Dates: start: 2020
  2. OCREVUS [Suspect]
     Active Substance: OCRELIZUMAB
     Indication: Progressive multiple sclerosis
     Route: 042
  3. KLONOPIN [Suspect]
     Active Substance: CLONAZEPAM
     Indication: Anxiety
     Dosage: IS PRESCRIBED UP TO 4 TABLETS A DAY BUT USUALLY TAKES 2-2 /DAY
     Route: 048
     Dates: start: 2016
  4. KLONOPIN [Suspect]
     Active Substance: CLONAZEPAM
     Indication: Tremor
  5. COVID-19 VACCINE NOS [Suspect]
     Active Substance: COVID-19 VACCINE NOS
     Indication: Product used for unknown indication
     Route: 065
     Dates: start: 202104, end: 202104
  6. ESCITALOPRAM [Concomitant]
     Active Substance: ESCITALOPRAM OXALATE
     Indication: Depression
  7. OXYBUTYNIN [Concomitant]
     Active Substance: OXYBUTYNIN
     Indication: Micturition urgency
  8. ALEVE [Concomitant]
     Active Substance: NAPROXEN SODIUM
     Indication: Pain
  9. VITAMIN B12 [Concomitant]
     Active Substance: CYANOCOBALAMIN
  10. FISH OIL [Concomitant]
     Active Substance: FISH OIL

REACTIONS (6)
  - Fall [Unknown]
  - Memory impairment [Unknown]
  - Fall [Unknown]
  - Somnolence [Unknown]
  - Weight increased [Unknown]
  - Off label use [Unknown]

NARRATIVE: CASE EVENT DATE: 20200101
